FAERS Safety Report 11091071 (Version 2)
Quarter: 2015Q2

REPORT INFORMATION
  Report Type: Spontaneous
  Country: US (occurrence: US)
  Receive Date: 20150505
  Receipt Date: 20150519
  Transmission Date: 20150821
  Serious: Yes (Other)
  Sender: FDA-Public Use
  Company Number: US-PFIZER INC-2015144310

PATIENT
  Age: 63 Year
  Sex: Female
  Weight: 66 kg

DRUGS (3)
  1. LYRICA [Suspect]
     Active Substance: PREGABALIN
     Dosage: 375 MG, UNK
  2. LYRICA [Suspect]
     Active Substance: PREGABALIN
     Dosage: 475 MG, UNK
  3. LYRICA [Suspect]
     Active Substance: PREGABALIN
     Indication: FIBROMYALGIA
     Dosage: UNK
     Dates: start: 2006

REACTIONS (7)
  - Weight increased [Unknown]
  - Drug intolerance [Unknown]
  - Peripheral swelling [Unknown]
  - Gastric disorder [Recovering/Resolving]
  - Malaise [Unknown]
  - Pain [Not Recovered/Not Resolved]
  - Constipation [Unknown]
